FAERS Safety Report 4876886-3 (Version None)
Quarter: 2006Q1

REPORT INFORMATION
  Report Type: 
  Country: None (occurrence: None)
  Receive Date: 20060109
  Receipt Date: 20060109
  Transmission Date: 20060701
  Serious: Yes (Other)
  Sender: FDA-Public Use
  Company Number: None

PATIENT
  Age: 19 Year
  Sex: Female
  Weight: 61.2356 kg

DRUGS (2)
  1. SKELAXIN [Suspect]
     Indication: MUSCLE STRAIN
     Dosage: 800 MG THREE TIMES /DAY PO
     Route: 048
     Dates: start: 20060104, end: 20060105
  2. CELEBREX [Concomitant]

REACTIONS (3)
  - BEDRIDDEN [None]
  - CHEST DISCOMFORT [None]
  - DYSARTHRIA [None]
